FAERS Safety Report 23789268 (Version 1)
Quarter: 2024Q2

REPORT INFORMATION
  Report Type: Spontaneous
  Country: US (occurrence: None)
  Receive Date: 20240425
  Receipt Date: 20240425
  Transmission Date: 20240716
  Serious: No
  Sender: FDA-Public Use
  Company Number: None

PATIENT
  Age: 34 Year
  Sex: Male

DRUGS (1)
  1. RINVOQ [Suspect]
     Active Substance: UPADACITINIB

REACTIONS (1)
  - Small intestinal obstruction [None]

NARRATIVE: CASE EVENT DATE: 20240326
